FAERS Safety Report 13810423 (Version 4)
Quarter: 2018Q1

REPORT INFORMATION
  Report Type: Report from Study
  Country: BR (occurrence: BR)
  Receive Date: 20170728
  Receipt Date: 20180126
  Transmission Date: 20180508
  Serious: Yes (Death, Hospitalization)
  Sender: FDA-Public Use
  Company Number: BR-B.I. PHARMACEUTICALS,INC./RIDGEFIELD-2017-BI-030888

PATIENT
  Age: 77 Year
  Sex: Female
  Weight: 40 kg

DRUGS (12)
  1. CLORIDRATO DE DILTIAZEM [Concomitant]
     Indication: DYSPNOEA
     Route: 048
     Dates: start: 201702
  2. OFEV [Suspect]
     Active Substance: NINTEDANIB
     Route: 048
     Dates: start: 20170625, end: 20170720
  3. CLORIDRATO DE DILTIAZEM [Concomitant]
     Indication: ARRHYTHMIA
     Route: 048
     Dates: start: 201706
  4. PREDNISONA [Concomitant]
     Active Substance: PREDNISONE
     Indication: IDIOPATHIC PULMONARY FIBROSIS
     Route: 048
     Dates: start: 201610
  5. SPIRONOLACTONA [Concomitant]
     Indication: BLOOD PRESSURE MEASUREMENT
     Route: 048
     Dates: start: 201706
  6. OFEV [Suspect]
     Active Substance: NINTEDANIB
     Indication: IDIOPATHIC PULMONARY FIBROSIS
     Route: 048
     Dates: start: 20170301, end: 20170608
  7. OMEPRAZOL [Concomitant]
     Active Substance: OMEPRAZOLE
     Indication: DYSPEPSIA
     Route: 048
     Dates: start: 2003
  8. PREDNISONA [Concomitant]
     Active Substance: PREDNISONE
     Indication: INFLAMMATION
  9. ENALAPRIL [Concomitant]
     Active Substance: ENALAPRIL
     Indication: HYPERTENSION
     Route: 048
  10. LOSARTAN. [Concomitant]
     Active Substance: LOSARTAN
     Indication: HYPERTENSION
     Route: 048
     Dates: start: 201706, end: 201706
  11. LOSARTAN. [Concomitant]
     Active Substance: LOSARTAN
     Route: 048
     Dates: start: 201706
  12. LOSARTAN. [Concomitant]
     Active Substance: LOSARTAN
     Route: 048

REACTIONS (20)
  - Idiopathic pulmonary fibrosis [Fatal]
  - Urinary incontinence [Not Recovered/Not Resolved]
  - Feeling abnormal [Unknown]
  - Peripheral swelling [Not Recovered/Not Resolved]
  - Dyspnoea [Unknown]
  - Dyspnoea [Not Recovered/Not Resolved]
  - Limb discomfort [Not Recovered/Not Resolved]
  - Limb discomfort [Not Recovered/Not Resolved]
  - Blood pressure abnormal [Unknown]
  - Hepatic enzyme abnormal [Not Recovered/Not Resolved]
  - Loss of personal independence in daily activities [Not Recovered/Not Resolved]
  - Blood pressure increased [Recovered/Resolved]
  - Arrhythmia [Not Recovered/Not Resolved]
  - Condition aggravated [Unknown]
  - Product supply issue [Unknown]
  - Dyspnoea [Not Recovered/Not Resolved]
  - Blood pressure abnormal [Recovered/Resolved]
  - Weight decreased [Not Recovered/Not Resolved]
  - Diabetes mellitus [Unknown]
  - Fatigue [Not Recovered/Not Resolved]

NARRATIVE: CASE EVENT DATE: 20170516
